FAERS Safety Report 18060971 (Version 1)
Quarter: 2020Q3

REPORT INFORMATION
  Report Type: Spontaneous
  Country: US (occurrence: US)
  Receive Date: 20200723
  Receipt Date: 20200723
  Transmission Date: 20201103
  Serious: Yes (Death, Life-Threatening, Hospitalization, Disabling, Other)
  Sender: FDA-Public Use
  Company Number: US-009507513-2007USA007351

PATIENT
  Sex: Female

DRUGS (3)
  1. KEYTRUDA [Suspect]
     Active Substance: PEMBROLIZUMAB
     Indication: NEOPLASM MALIGNANT
     Dosage: UNK
     Dates: start: 202004
  2. KEYTRUDA [Suspect]
     Active Substance: PEMBROLIZUMAB
     Dosage: UNK
     Dates: start: 202005
  3. KEYTRUDA [Suspect]
     Active Substance: PEMBROLIZUMAB
     Dosage: UNK
     Dates: start: 20200611

REACTIONS (9)
  - Muscle rigidity [Unknown]
  - Speech disorder [Unknown]
  - Cyanosis [Unknown]
  - Gait inability [Unknown]
  - Muscle disorder [Unknown]
  - Death [Fatal]
  - Ill-defined disorder [Unknown]
  - Thermal burn [Unknown]
  - Seizure [Unknown]

NARRATIVE: CASE EVENT DATE: 202005
